FAERS Safety Report 21603223 (Version 2)
Quarter: 2023Q4

REPORT INFORMATION
  Report Type: Spontaneous
  Country: US (occurrence: US)
  Receive Date: 20221116
  Receipt Date: 20231128
  Transmission Date: 20240110
  Serious: Yes (Hospitalization, Other)
  Sender: FDA-Public Use
  Company Number: US-PFIZER INC-2021814957

PATIENT
  Age: 80 Year
  Sex: Male
  Weight: 92.99 kg

DRUGS (2)
  1. VYNDAMAX [Suspect]
     Active Substance: TAFAMIDIS
     Indication: Acquired ATTR amyloidosis
     Dosage: 61 MG, DAILY(TAKES 1 EVERY DAY)
  2. VYNDAMAX [Suspect]
     Active Substance: TAFAMIDIS
     Dosage: 61 MG

REACTIONS (4)
  - Cerebrovascular accident [Unknown]
  - Amyloidosis [Unknown]
  - Intentional product misuse [Unknown]
  - Fatigue [Unknown]
